FAERS Safety Report 19899363 (Version 1)
Quarter: 2021Q3

REPORT INFORMATION
  Report Type: Spontaneous
  Country: SE (occurrence: SE)
  Receive Date: 20210929
  Receipt Date: 20210929
  Transmission Date: 20211014
  Serious: Yes (Disabling)
  Sender: FDA-Public Use
  Company Number: SE-MYLANLABS-2021M1066715

PATIENT
  Age: 52 Year
  Sex: Female

DRUGS (1)
  1. ISOPTIN [Suspect]
     Active Substance: VERAPAMIL HYDROCHLORIDE
     Indication: CLUSTER HEADACHE
     Dosage: 3 , QD = 4+4+5 MG/DAY
     Route: 048
     Dates: start: 20191201, end: 20210105

REACTIONS (2)
  - Loose tooth [Recovered/Resolved with Sequelae]
  - Gingival hypertrophy [Recovered/Resolved with Sequelae]

NARRATIVE: CASE EVENT DATE: 20200210
